FAERS Safety Report 18618823 (Version 1)
Quarter: 2020Q4

REPORT INFORMATION
  Report Type: Spontaneous
  Country: US (occurrence: US)
  Receive Date: 20201215
  Receipt Date: 20201215
  Transmission Date: 20210114
  Serious: Yes (Hospitalization, Other)
  Sender: FDA-Public Use
  Company Number: US-CATALYST PHARMACEUTICALS, INC-2020CAT00599

PATIENT
  Age: 76 Year
  Sex: Male

DRUGS (2)
  1. GAMMAPLEX [Concomitant]
     Active Substance: HUMAN IMMUNOGLOBULIN G
     Dosage: UNK, 1X/MONTH
     Route: 042
  2. FIRDAPSE [Suspect]
     Active Substance: AMIFAMPRIDINE PHOSPHATE
     Indication: MYASTHENIC SYNDROME
     Dosage: 20 MG, 3X/DAY
     Route: 048

REACTIONS (11)
  - Dyspnoea [Recovering/Resolving]
  - Urinary tract infection [Recovered/Resolved]
  - Hypopnoea [Recovering/Resolving]
  - Fall [Recovered/Resolved]
  - Pallor [Recovering/Resolving]
  - Restlessness [Recovering/Resolving]
  - Atrial fibrillation [Unknown]
  - Cardiac failure congestive [Recovering/Resolving]
  - Asthenia [Not Recovered/Not Resolved]
  - Hypoxia [Recovering/Resolving]
  - Balance disorder [Recovered/Resolved]

NARRATIVE: CASE EVENT DATE: 2020
